FAERS Safety Report 15826525 (Version 5)
Quarter: 2019Q3

REPORT INFORMATION
  Report Type: Spontaneous
  Country: CZ (occurrence: CZ)
  Receive Date: 20190115
  Receipt Date: 20190826
  Transmission Date: 20191004
  Serious: Yes (Hospitalization)
  Sender: FDA-Public Use
  Company Number: PHHY2018CZ196349

PATIENT
  Age: 25 Year
  Sex: Male

DRUGS (24)
  1. BILASTINE [Suspect]
     Active Substance: BILASTINE
     Indication: CHRONIC SPONTANEOUS URTICARIA
     Dosage: 20 MG, QD
     Route: 048
     Dates: start: 201601, end: 201601
  2. BILASTINE [Suspect]
     Active Substance: BILASTINE
     Dosage: 60 MG, QD
     Route: 048
     Dates: start: 201602
  3. PREDNISONE. [Suspect]
     Active Substance: PREDNISONE
     Indication: CHRONIC SPONTANEOUS URTICARIA
     Dosage: 10 MG, UNK
     Route: 048
     Dates: start: 2016
  4. PREDNISONE. [Suspect]
     Active Substance: PREDNISONE
     Dosage: 10 MG, QD
     Route: 048
     Dates: start: 201612
  5. BILASTINE [Suspect]
     Active Substance: BILASTINE
     Dosage: 40 MG, QD
     Route: 048
     Dates: start: 201601, end: 20160226
  6. BETAMETHASONE. [Concomitant]
     Active Substance: BETAMETHASONE
     Indication: PRODUCT USED FOR UNKNOWN INDICATION
     Dosage: UNK
     Route: 061
  7. XOLAIR [Concomitant]
     Active Substance: OMALIZUMAB
     Indication: CHRONIC SPONTANEOUS URTICARIA
     Dosage: UNK
     Route: 065
     Dates: start: 201604
  8. AZITHROMYCIN ANHYDROUS. [Suspect]
     Active Substance: AZITHROMYCIN ANHYDROUS
     Indication: URTICARIA
     Dosage: 500 MG, QD
     Route: 065
     Dates: start: 20160203, end: 20160209
  9. AMOXICILLIN. [Suspect]
     Active Substance: AMOXICILLIN
     Indication: URTICARIA
  10. BILASTINE [Suspect]
     Active Substance: BILASTINE
     Indication: URTICARIA CHRONIC
     Dosage: 60 MG, QD
     Route: 048
     Dates: start: 20160226
  11. BISULEPIN HYDROCHLORIDE [Concomitant]
     Active Substance: BISULEPIN HYDROCHLORIDE
     Dosage: UNK UNK, UNKNOWN FREQ.
     Route: 065
  12. BETAMETHASONE DIPROPIONATE. [Concomitant]
     Active Substance: BETAMETHASONE DIPROPIONATE
     Indication: CHRONIC SPONTANEOUS URTICARIA
  13. DESLORATADINE. [Suspect]
     Active Substance: DESLORATADINE
     Indication: URTICARIA
     Dosage: 5 MG, QD
     Route: 048
     Dates: start: 201601, end: 201601
  14. BILASTINE [Suspect]
     Active Substance: BILASTINE
     Dosage: 40 MG, QD
     Route: 065
     Dates: start: 201612
  15. BILASTINE [Suspect]
     Active Substance: BILASTINE
     Dosage: 20 MG, QD
     Route: 065
     Dates: start: 2016, end: 2016
  16. AZITHROMYCIN ANHYDROUS. [Suspect]
     Active Substance: AZITHROMYCIN ANHYDROUS
     Indication: CHRONIC SPONTANEOUS URTICARIA
  17. AMOXICILLIN. [Suspect]
     Active Substance: AMOXICILLIN
     Indication: CHRONIC SPONTANEOUS URTICARIA
     Dosage: 1 G, BID
     Route: 048
     Dates: start: 20160226
  18. BILASTINE [Suspect]
     Active Substance: BILASTINE
     Dosage: 40 MG, QD
     Route: 048
     Dates: end: 201602
  19. BETAMETHASONE DIPROPIONATE. [Concomitant]
     Active Substance: BETAMETHASONE DIPROPIONATE
     Indication: URTICARIA
     Dosage: UNK
     Route: 030
  20. DIPROPHOS [Concomitant]
     Active Substance: BETAMETHASONE DIPROPIONATE\BETAMETHASONE SODIUM PHOSPHATE
     Indication: CHRONIC SPONTANEOUS URTICARIA
     Dosage: 1 ML, UNK
     Route: 030
  21. XOLAIR [Concomitant]
     Active Substance: OMALIZUMAB
     Dosage: UNK UNK, CYCLIC
     Route: 065
     Dates: start: 20161221
  22. PREDNISONE. [Suspect]
     Active Substance: PREDNISONE
     Indication: URTICARIA
     Dosage: 60 MG, QD
     Route: 065
     Dates: start: 20160212, end: 20160225
  23. PREDNISONE. [Suspect]
     Active Substance: PREDNISONE
     Dosage: 40 MG, QD
     Route: 048
     Dates: start: 20160226
  24. BISULEPIN HYDROCHLORIDE [Concomitant]
     Active Substance: BISULEPIN HYDROCHLORIDE
     Indication: PRODUCT USED FOR UNKNOWN INDICATION
     Dosage: UNK
     Route: 065

REACTIONS (8)
  - Abdominal pain lower [Recovered/Resolved]
  - Nausea [Recovered/Resolved]
  - Drug ineffective [Recovered/Resolved]
  - Prescribed overdose [Unknown]
  - Polycythaemia [Unknown]
  - Rash vesicular [Recovering/Resolving]
  - Leukocytosis [Unknown]
  - Oropharyngeal discomfort [Recovered/Resolved]

NARRATIVE: CASE EVENT DATE: 2016
